FAERS Safety Report 7888219-9 (Version None)
Quarter: 2011Q4

REPORT INFORMATION
  Report Type: 
  Country: None (occurrence: None)
  Receive Date: 20111102
  Receipt Date: 20111102
  Transmission Date: 20120403
  Serious: Yes (Hospitalization)
  Sender: FDA-Public Use
  Company Number: None

PATIENT
  Sex: Female
  Weight: 84.34 kg

DRUGS (12)
  1. IRINOTECAN HCL [Suspect]
     Dosage: 362MG
  2. DIFLUCAN [Concomitant]
  3. KEPPRA [Concomitant]
  4. LEXAPRO [Concomitant]
  5. ZOSYN [Concomitant]
  6. VANCOMYCIN [Concomitant]
  7. SYNTHROID [Concomitant]
  8. ZOFRAN [Concomitant]
  9. TEMOZOLOMIDE [Suspect]
     Dosage: 180 MG
  10. DEXAMETHASONE [Concomitant]
  11. TOPROL-XL [Concomitant]
  12. COUMADIN [Concomitant]

REACTIONS (2)
  - PULMONARY EMBOLISM [None]
  - BODY TEMPERATURE INCREASED [None]
